FAERS Safety Report 24303905 (Version 2)
Quarter: 2025Q1

REPORT INFORMATION
  Report Type: Spontaneous
  Country: US (occurrence: US)
  Receive Date: 20240910
  Receipt Date: 20250123
  Transmission Date: 20250408
  Serious: Yes (Other)
  Sender: PFIZER
  Company Number: US-PFIZER INC-202400074314

PATIENT
  Age: 71 Year
  Sex: Female
  Weight: 59.864 kg

DRUGS (8)
  1. IBRANCE [Suspect]
     Active Substance: PALBOCICLIB
     Indication: Breast cancer female
     Dates: start: 20240229
  2. IBRANCE [Suspect]
     Active Substance: PALBOCICLIB
     Route: 048
     Dates: start: 20240328
  3. IBRANCE [Suspect]
     Active Substance: PALBOCICLIB
  4. FASLODEX [Suspect]
     Active Substance: FULVESTRANT
     Indication: Breast cancer female
     Route: 048
     Dates: start: 20240229
  5. CELECOXIB [Concomitant]
     Active Substance: CELECOXIB
     Dosage: 40 MG, 1X/DAY
     Route: 048
  6. NEXIUM I.V. [Concomitant]
     Active Substance: ESOMEPRAZOLE SODIUM
     Dosage: 40 MG, DAILY
     Route: 048
  7. METAMUCIL [Concomitant]
     Active Substance: PLANTAGO SEED
     Route: 048
  8. PROLIA [Concomitant]
     Active Substance: DENOSUMAB
     Route: 058

REACTIONS (5)
  - Neutropenia [Unknown]
  - Onychoclasis [Not Recovered/Not Resolved]
  - Neoplasm progression [Not Recovered/Not Resolved]
  - Stomatitis [Unknown]
  - Product prescribing error [Unknown]

NARRATIVE: CASE EVENT DATE: 20240301
